FAERS Safety Report 5272938-7 (Version None)
Quarter: 2007Q1

REPORT INFORMATION
  Report Type: 
  Country: None (occurrence: None)
  Receive Date: 20061219
  Receipt Date: 20060921
  Transmission Date: 20070707
  Serious: Yes (Hospitalization)
  Sender: FDA-Public Use
  Company Number: US-JNJFOC-20060104621

PATIENT
  Age: 34 Year
  Sex: Female
  Weight: 73.0291 kg

DRUGS (4)
  1. ORTHO EVRA [Suspect]
     Indication: OVARIAN CYST
     Dosage: 1 DOSE(S), 1 IN 3 WEEK, TRANSDERMAL
     Route: 062
     Dates: start: 20031001, end: 20031201
  2. ORAL CONTRACEPTIVES (ORAL CONTRACEPTIVE NOS) [Suspect]
     Indication: DRUG USE FOR UNKNOWN INDICATION
  3. ZOMIG [Concomitant]
  4. TUSSIN (DEXTROMETHORPHAN HYDROBROMIDE) [Concomitant]

REACTIONS (2)
  - DEEP VEIN THROMBOSIS [None]
  - PULMONARY EMBOLISM [None]
